FAERS Safety Report 7145225-X (Version None)
Quarter: 2010Q4

REPORT INFORMATION
  Report Type: 
  Country: None (occurrence: None)
  Receive Date: 20101124
  Receipt Date: 20101109
  Transmission Date: 20110411
  Serious: Yes (Hospitalization)
  Sender: FDA-Public Use
  Company Number: 2010-3721

PATIENT
  Age: 78 Year
  Sex: Female
  Weight: 40 kg

DRUGS (1)
  1. APO-GO AMPOULES (APO-GO) (APOMORPHINE HYDROCHLORIDE) (APOMORPHINE HYDR [Suspect]
     Indication: PARKINSON'S DISEASE
     Dosage: CONTINUOUS FROM 06:00 TO 22:00 (CONTINUOUS), SUBCUTANEOUS
     Route: 058
     Dates: start: 20080101

REACTIONS (5)
  - ACUTE ABDOMEN [None]
  - CARDIAC DISORDER [None]
  - ESCHERICHIA INFECTION [None]
  - HYPOKALAEMIA [None]
  - URINARY TRACT INFECTION [None]
